FAERS Safety Report 9475103 (Version 1)
Quarter: 2013Q3

REPORT INFORMATION
  Report Type: Report from Study
  Country: DE (occurrence: DE)
  Receive Date: 20130824
  Receipt Date: 20130824
  Transmission Date: 20140515
  Serious: Yes (Hospitalization)
  Sender: FDA-Public Use
  Company Number: DE-ROCHE-1265508

PATIENT
  Age: 61 Year
  Sex: Male

DRUGS (2)
  1. TOCILIZUMAB [Suspect]
     Indication: RHEUMATOID ARTHRITIS
     Route: 065
     Dates: start: 201007
  2. TOCILIZUMAB [Suspect]
     Route: 065

REACTIONS (4)
  - Vasculitis [Unknown]
  - Arthrodesis [Unknown]
  - Bronchitis [Unknown]
  - Pharyngitis [Unknown]
